FAERS Safety Report 8910043 (Version 2)
Quarter: 2012Q4

REPORT INFORMATION
  Report Type: 
  Country: US (occurrence: US)
  Receive Date: 20121115
  Receipt Date: 20121212
  Transmission Date: 20130627
  Serious: Yes (Other)
  Sender: FDA-Public Use
  Company Number: US-009507513-1211USA005524

PATIENT
  Sex: Female

DRUGS (5)
  1. AZASITE [Suspect]
     Indication: BLEPHARITIS
     Dosage: One drop in each eye at bedtime
     Route: 047
     Dates: start: 201003
  2. AZASITE [Suspect]
     Indication: DRY EYE
  3. SYNTHROID [Concomitant]
  4. AMBIEN [Concomitant]
  5. MIRAPEX [Concomitant]

REACTIONS (6)
  - Hip arthroplasty [Not Recovered/Not Resolved]
  - Elbow operation [Not Recovered/Not Resolved]
  - Knee arthroplasty [Not Recovered/Not Resolved]
  - Foot operation [Not Recovered/Not Resolved]
  - Eye irritation [Not Recovered/Not Resolved]
  - Treatment noncompliance [Unknown]
